FAERS Safety Report 9380754 (Version 1)
Quarter: 2013Q3

REPORT INFORMATION
  Report Type: Spontaneous
  Country: US (occurrence: US)
  Receive Date: 20130702
  Receipt Date: 20130702
  Transmission Date: 20140515
  Serious: No
  Sender: FDA-Public Use
  Company Number: US-PFIZER INC-2013196145

PATIENT
  Age: 82 Year
  Sex: Female
  Weight: 74.8 kg

DRUGS (6)
  1. ZOLOFT [Suspect]
     Indication: SOCIAL PHOBIA
     Dosage: UNK
  2. SERTRALINE [Suspect]
     Indication: SOCIAL PHOBIA
     Dosage: 50 MG, 1X/DAY
     Route: 048
  3. SERTRALINE [Suspect]
     Dosage: 100 MG, 1X/DAY
     Route: 048
  4. PLAVIX [Concomitant]
     Dosage: UNK
  5. LORAZEPAM [Concomitant]
     Dosage: 1 MG, 1X/DAY
  6. ATORVASTATIN [Concomitant]
     Dosage: 10 MG, 1X/DAY

REACTIONS (2)
  - Drug ineffective [Unknown]
  - Vitamin B12 decreased [Unknown]
